FAERS Safety Report 6607209-7 (Version None)
Quarter: 2010Q1

REPORT INFORMATION
  Report Type: 
  Country: None (occurrence: None)
  Receive Date: 20100227
  Receipt Date: 20100215
  Transmission Date: 20100710
  Serious: Yes (Death)
  Sender: FDA-Public Use
  Company Number: US-JNJFOC-20100209513

PATIENT
  Age: 48 Year
  Sex: Female
  Weight: 80.74 kg

DRUGS (6)
  1. FENTANYL-100 [Suspect]
     Indication: DRUG USE FOR UNKNOWN INDICATION
     Route: 065
  2. METHADONE [Suspect]
     Indication: DRUG USE FOR UNKNOWN INDICATION
     Route: 065
  3. CHLORDIAZEPOXIDE [Concomitant]
     Route: 065
  4. DESMETHYLDIAZEPAM [Concomitant]
     Route: 065
  5. CITALOPRAM HYDROBROMIDE [Concomitant]
     Route: 065
  6. CAFFEINE CITRATE [Concomitant]
     Route: 065

REACTIONS (4)
  - ALCOHOLISM [None]
  - DRUG LEVEL INCREASED [None]
  - HEPATITIS C [None]
  - NARCOTIC INTOXICATION [None]
